FAERS Safety Report 17295253 (Version 1)
Quarter: 2020Q1

REPORT INFORMATION
  Report Type: Spontaneous
  Country: US (occurrence: US)
  Receive Date: 20200121
  Receipt Date: 20200121
  Transmission Date: 20200409
  Serious: No
  Sender: FDA-Public Use
  Company Number: US-MTPC-MTDA2020-0039318

PATIENT

DRUGS (1)
  1. RADICAVA [Suspect]
     Active Substance: EDARAVONE
     Indication: PRODUCT USED FOR UNKNOWN INDICATION
     Dosage: 14 DAYS OF  INFUSION, 10 DAYS OFF AFTER
     Route: 065

REACTIONS (5)
  - Upper limb fracture [Unknown]
  - Mobility decreased [Unknown]
  - Condition aggravated [Unknown]
  - Diarrhoea [Unknown]
  - Faeces discoloured [Unknown]
